FAERS Safety Report 7164461-X (Version None)
Quarter: 2010Q4

REPORT INFORMATION
  Report Type: 
  Country: None (occurrence: None)
  Receive Date: 20101215
  Receipt Date: 20101204
  Transmission Date: 20110411
  Serious: Yes (Hospitalization)
  Sender: FDA-Public Use
  Company Number: NL-MEDIMMUNE-MEDI-0011906

PATIENT
  Sex: Male
  Weight: 7.9 kg

DRUGS (1)
  1. SYNAGIS [Suspect]
     Route: 030
     Dates: start: 20101007, end: 20101104

REACTIONS (4)
  - EAR INFECTION [None]
  - NASOPHARYNGITIS [None]
  - PERITONSILLAR ABSCESS [None]
  - SENSE OF OPPRESSION [None]
